FAERS Safety Report 20581009 (Version 2)
Quarter: 2022Q4

REPORT INFORMATION
  Report Type: Report from Study
  Country: US (occurrence: US)
  Receive Date: 20220311
  Receipt Date: 20221024
  Transmission Date: 20230113
  Serious: Yes (Hospitalization, Other)
  Sender: FDA-Public Use
  Company Number: US-ABBVIE-22K-163-4307746-00

PATIENT
  Age: 75 Year
  Sex: Male

DRUGS (12)
  1. SKYRIZI [Suspect]
     Active Substance: RISANKIZUMAB-RZAA
     Indication: Psoriasis
     Route: 058
  2. SKYRIZI [Suspect]
     Active Substance: RISANKIZUMAB-RZAA
     Indication: Psoriasis
  3. ATORVASTATIN [Concomitant]
     Active Substance: ATORVASTATIN
     Indication: Cardiac disorder
     Dosage: FREQUENCY TEXT TQD?FORM STRENGTH10 MG
     Route: 048
     Dates: start: 20140730
  4. PFIZER-BIONTECH COVID-19 VACCINE [Concomitant]
     Active Substance: TOZINAMERAN
     Indication: COVID-19 immunisation
     Dosage: TIME INTERVAL: 1 TOTAL: 1ST DOSE?ONE IN ONCE
     Route: 030
     Dates: start: 20210310, end: 20210310
  5. PFIZER-BIONTECH COVID-19 VACCINE [Concomitant]
     Active Substance: TOZINAMERAN
     Indication: COVID-19 immunisation
     Dosage: TIME INTERVAL: 1 TOTAL: 2ND DOSE?ONE IN ONCE
     Route: 030
     Dates: start: 20210616, end: 20210616
  6. PFIZER-BIONTECH COVID-19 VACCINE [Concomitant]
     Active Substance: TOZINAMERAN
     Indication: COVID-19 immunisation
     Dosage: TIME INTERVAL: 1 TOTAL: BOOSTER DOSE?ONE IN ONCE
     Route: 030
     Dates: start: 20220120, end: 20220120
  7. VITAMIN D [Concomitant]
     Active Substance: VITAMIN D NOS
     Indication: Vitamin D deficiency
     Dosage: FORM STRENGTH 50 MG
     Route: 048
     Dates: start: 20210603
  8. HEPARIN [Concomitant]
     Active Substance: HEPARIN SODIUM
     Indication: Product used for unknown indication
  9. AMLODIPINE [Concomitant]
     Active Substance: AMLODIPINE BESYLATE
     Indication: Hypertension
     Dosage: FORM STRENGTH 25 MG TBID
     Route: 048
     Dates: start: 20191203
  10. TRAMADOL [Concomitant]
     Active Substance: TRAMADOL
     Indication: Intervertebral disc disorder
     Dosage: FREQUENCY TTID?FORM STRENGTH 50 MG
     Route: 048
     Dates: start: 20130712
  11. ELIQUIS [Concomitant]
     Active Substance: APIXABAN
     Indication: Transient ischaemic attack
     Dosage: FORM STRENGTH 5 MG
     Route: 048
     Dates: start: 20210401
  12. ESCITALOPRAM [Concomitant]
     Active Substance: ESCITALOPRAM OXALATE
     Indication: Depression
     Dosage: FORM STRENGTH 10 MG?FREQUENCY TEXT TQD
     Route: 048
     Dates: start: 20220101

REACTIONS (4)
  - Cerebrovascular accident [Recovered/Resolved]
  - Paraesthesia [Recovered/Resolved]
  - Ankle fracture [Unknown]
  - Fall [Unknown]

NARRATIVE: CASE EVENT DATE: 20210324
